FAERS Safety Report 4650756-8 (Version None)
Quarter: 2005Q2

REPORT INFORMATION
  Report Type: 
  Country: None (occurrence: None)
  Receive Date: 20050503
  Receipt Date: 20050425
  Transmission Date: 20051028
  Serious: Yes (Other)
  Sender: FDA-Public Use
  Company Number: PHNU2005DE01753

PATIENT
  Age: 1 Year
  Sex: Male

DRUGS (8)
  1. SANDIMMUNE [Suspect]
     Indication: BONE MARROW TRANSPLANT
     Dosage: UNK, UNK
  2. OTHER ANTIMYCOTICS FOR SYSTEMIC USE [Suspect]
  3. GRANOCYTE [Suspect]
  4. GANCICLOVIR [Suspect]
  5. VANCOMYCIN [Suspect]
  6. IMIPENEM [Suspect]
  7. CELLCEPT [Suspect]
  8. URSO FALK [Suspect]

REACTIONS (1)
  - CALCINOSIS [None]
